FAERS Safety Report 9857507 (Version 1)
Quarter: 2014Q1

REPORT INFORMATION
  Report Type: Spontaneous
  Country: FR (occurrence: FR)
  Receive Date: 20140131
  Receipt Date: 20140131
  Transmission Date: 20141002
  Serious: Yes (Death)
  Sender: FDA-Public Use
  Company Number: PHHY2014FR010564

PATIENT
  Age: 57 Year
  Sex: Female

DRUGS (4)
  1. VOLTARENE [Suspect]
     Indication: PAIN
     Dosage: UNK UKN, UNK
     Route: 048
     Dates: start: 20131103
  2. AUGMENTIN [Concomitant]
     Indication: INFLUENZA LIKE ILLNESS
     Dosage: UNK UKN, UNK
     Route: 048
     Dates: start: 20131102, end: 20131104
  3. TRAMADOL HYDROCHLORIDE [Concomitant]
     Indication: PAIN
     Dosage: UNK UKN, UNK
     Route: 048
     Dates: start: 20131103
  4. PARACETAMOL [Concomitant]
     Indication: PAIN
     Dosage: UNK UKN, UNK
     Route: 048

REACTIONS (2)
  - Necrotising fasciitis [Fatal]
  - Septic shock [Fatal]
